FAERS Safety Report 16212504 (Version 1)
Quarter: 2019Q2

REPORT INFORMATION
  Report Type: Spontaneous
  Country: SE (occurrence: SE)
  Receive Date: 20190418
  Receipt Date: 20190418
  Transmission Date: 20190711
  Serious: Yes (Hospitalization, Other)
  Sender: FDA-Public Use
  Company Number: SE-ACS-001397

PATIENT
  Age: 72 Year
  Sex: Male

DRUGS (6)
  1. TERAZOSIN [Concomitant]
     Active Substance: TERAZOSIN\TERAZOSIN HYDROCHLORIDE
     Route: 065
  2. AMPICILLIN [Suspect]
     Active Substance: AMPICILLIN
     Route: 065
  3. CEFTRIAXONE. [Suspect]
     Active Substance: CEFTRIAXONE
     Route: 065
  4. AMOXICILLIN/CLAVULANIC ACID [Suspect]
     Active Substance: AMOXICILLIN\CLAVULANIC ACID
     Indication: PYREXIA
     Route: 065
  5. ACICLOVIR [Suspect]
     Active Substance: ACYCLOVIR
     Route: 065
  6. MOXIFLOXACIN. [Suspect]
     Active Substance: MOXIFLOXACIN
     Route: 065

REACTIONS (9)
  - Constipation [Unknown]
  - Depressed level of consciousness [Unknown]
  - Chills [Unknown]
  - Vomiting projectile [Unknown]
  - Headache [Unknown]
  - Decreased appetite [Unknown]
  - Body temperature increased [Unknown]
  - Meningitis aseptic [Unknown]
  - Musculoskeletal stiffness [Unknown]
